FAERS Safety Report 5386769-0 (Version None)
Quarter: 2007Q3

REPORT INFORMATION
  Report Type: 
  Country: None (occurrence: None)
  Receive Date: 20070713
  Receipt Date: 20070702
  Transmission Date: 20080115
  Serious: Yes (Hospitalization, Disabling, Other)
  Sender: FDA-Public Use
  Company Number: US-PFIZER INC-2006100314

PATIENT
  Sex: Female
  Weight: 88.5 kg

DRUGS (7)
  1. CELEBREX [Suspect]
     Indication: ARTHRITIS
  2. BEXTRA [Suspect]
     Indication: ARTHRITIS
     Dates: start: 20031006
  3. VIOXX [Suspect]
     Indication: PAIN IN EXTREMITY
     Route: 048
     Dates: start: 20010619
  4. VIOXX [Suspect]
     Indication: ARTHRITIS
  5. OXYCONTIN [Concomitant]
     Dates: start: 20010703, end: 20010918
  6. PROPOXYPHENE NAPSYLATE W/ ACETAMINOPHEN [Concomitant]
     Dates: start: 20010604, end: 20021102
  7. ROXICET [Concomitant]
     Dates: start: 20010511, end: 20060217

REACTIONS (4)
  - ANXIETY [None]
  - CEREBROVASCULAR ACCIDENT [None]
  - DEPRESSION [None]
  - RASH [None]
